FAERS Safety Report 8607845 (Version 4)
Quarter: 2014Q2

REPORT INFORMATION
  Report Type: Spontaneous
  Country: US (occurrence: US)
  Receive Date: 20120611
  Receipt Date: 20140523
  Transmission Date: 20141212
  Serious: Yes (Disabling)
  Sender: FDA-Public Use
  Company Number: US-ASTRAZENECA-2012SE35348

PATIENT
  Age: 61 Year
  Sex: Female
  Weight: 80.3 kg

DRUGS (24)
  1. NEXIUM [Suspect]
     Indication: GASTROOESOPHAGEAL REFLUX DISEASE
     Route: 048
     Dates: start: 2005
  2. NEXIUM [Suspect]
     Indication: GASTROOESOPHAGEAL REFLUX DISEASE
     Route: 048
     Dates: start: 20050712
  3. NEXIUM [Suspect]
     Indication: GASTROOESOPHAGEAL REFLUX DISEASE
     Route: 048
     Dates: start: 20060103
  4. NEXIUM [Suspect]
     Indication: GASTROOESOPHAGEAL REFLUX DISEASE
     Route: 048
     Dates: start: 20120222
  5. LEXAPRO [Concomitant]
     Indication: DEPRESSION
     Dates: start: 20120710
  6. STEROIDS [Concomitant]
  7. PREDNISONE [Concomitant]
     Dates: start: 20090601
  8. PLAVIX [Concomitant]
     Dates: start: 20091217
  9. ALENDRONATE [Concomitant]
     Dates: start: 20091217
  10. PREMARIN [Concomitant]
     Dates: start: 20060103
  11. BONIVA [Concomitant]
     Dates: start: 20090417
  12. ZYRTEC [Concomitant]
  13. RESCON [Concomitant]
  14. LEVAQUIN [Concomitant]
  15. TESSALON [Concomitant]
  16. PROTONIX [Concomitant]
  17. NAPROSYN [Concomitant]
  18. RONDEC [Concomitant]
  19. CUTIVATE [Concomitant]
  20. SKELAXIN [Concomitant]
  21. IPRATROPIUM [Concomitant]
  22. FLUTICASONE [Concomitant]
  23. CITALOPRAM [Concomitant]
  24. HYDROXYZINE [Concomitant]

REACTIONS (7)
  - Sarcoidosis [Unknown]
  - Osteoporosis [Unknown]
  - Bone density decreased [Unknown]
  - Multiple fractures [Unknown]
  - Arthritis [Unknown]
  - Lung disorder [Unknown]
  - Osteopenia [Unknown]
